FAERS Safety Report 7404969-2 (Version None)
Quarter: 2011Q2

REPORT INFORMATION
  Report Type: 
  Country: None (occurrence: None)
  Receive Date: 20110411
  Receipt Date: 20110329
  Transmission Date: 20111010
  Serious: Yes (Hospitalization, Other)
  Sender: FDA-Public Use
  Company Number: CA-ELI_LILLY_AND_COMPANY-CA201103008430

PATIENT
  Age: 87 Year
  Sex: Male

DRUGS (12)
  1. VITAMIN D [Concomitant]
  2. LASIX [Concomitant]
  3. HYDROMORPHONE HCL [Concomitant]
  4. VENTOLIN [Concomitant]
  5. FORTEO [Suspect]
     Indication: OSTEOPOROSIS
     Dosage: 20 UG, QD
     Route: 058
     Dates: start: 20100317
  6. RAMIPRIL [Concomitant]
  7. CALCIUM [Concomitant]
  8. TRAZODONE HCL [Concomitant]
  9. ATROVENT [Concomitant]
  10. ADVAIR HFA [Concomitant]
  11. ATIVAN [Concomitant]
  12. COUMADIN [Concomitant]

REACTIONS (1)
  - CEREBROVASCULAR ACCIDENT [None]
